FAERS Safety Report 17762696 (Version 1)
Quarter: 2020Q2

REPORT INFORMATION
  Report Type: Spontaneous
  Country: US (occurrence: US)
  Receive Date: 20200508
  Receipt Date: 20200508
  Transmission Date: 20200714
  Serious: No
  Sender: FDA-Public Use
  Company Number: US-009507513-2005USA000805

PATIENT
  Age: 56 Year
  Sex: Female
  Weight: 56.7 kg

DRUGS (6)
  1. SINEMET [Suspect]
     Active Substance: CARBIDOPA\LEVODOPA
     Dosage: UNK
     Route: 048
  2. AMANTADINE. [Suspect]
     Active Substance: AMANTADINE HYDROCHLORIDE
     Dosage: 137 MILLIGRAM (MG) AT 137 MG, 1 X/DAILY AT BED TIME
     Route: 048
     Dates: start: 202003, end: 202004
  3. AMANTADINE. [Suspect]
     Active Substance: AMANTADINE HYDROCHLORIDE
     Indication: DYSKINESIA
     Dosage: 68.5 MILLIGRAM (MG) AT 68.5 MG, 1 X/DAILY AT BED TIME
     Route: 048
     Dates: start: 20200305, end: 202003
  4. RASAGILINE. [Concomitant]
     Active Substance: RASAGILINE
     Dosage: UNK
     Dates: end: 20200413
  5. MAGNESIUM OXIDE. [Concomitant]
     Active Substance: MAGNESIUM OXIDE
     Dosage: UNK
  6. CLONAZEPAM. [Concomitant]
     Active Substance: CLONAZEPAM
     Dosage: UNK

REACTIONS (6)
  - Tremor [Not Recovered/Not Resolved]
  - Urinary incontinence [Recovering/Resolving]
  - Hypersomnia [Recovered/Resolved]
  - Somnolence [Unknown]
  - Insomnia [Not Recovered/Not Resolved]
  - Fatigue [Not Recovered/Not Resolved]

NARRATIVE: CASE EVENT DATE: 2020
